FAERS Safety Report 24739280 (Version 1)
Quarter: 2024Q4

REPORT INFORMATION
  Report Type: Spontaneous
  Country: IT (occurrence: IT)
  Receive Date: 20241216
  Receipt Date: 20241216
  Transmission Date: 20250115
  Serious: Yes (Other)
  Sender: ABBVIE
  Company Number: None

PATIENT
  Age: 46 Year
  Sex: Male

DRUGS (7)
  1. SEVOFLURANE [Suspect]
     Active Substance: SEVOFLURANE
     Indication: Anaesthesia
     Route: 055
     Dates: start: 20240126, end: 20240126
  2. Magnesio [Concomitant]
     Indication: Analgesic therapy
  3. CEFAZOLIN SODIUM [Concomitant]
     Active Substance: CEFAZOLIN SODIUM
     Indication: Antibiotic prophylaxis
     Dates: start: 20240126, end: 20240126
  4. DEXAMETHASONE [Concomitant]
     Active Substance: DEXAMETHASONE
     Indication: Product used for unknown indication
     Dates: start: 20240126, end: 20240126
  5. PENTOBARBITALE SODICO [Concomitant]
     Indication: Product used for unknown indication
     Dates: start: 20240126, end: 20240126
  6. CISATRACURIUM BESYLATE [Suspect]
     Active Substance: CISATRACURIUM BESYLATE
     Indication: Anaesthesia
     Route: 042
     Dates: start: 20240126, end: 20240126
  7. SUFENTANIL [Suspect]
     Active Substance: SUFENTANIL
     Indication: Product used for unknown indication
     Route: 065
     Dates: start: 20240126, end: 20240126

REACTIONS (3)
  - Heart rate increased [Recovered/Resolved]
  - Hyperthermia [Recovered/Resolved]
  - Carbon dioxide increased [Recovered/Resolved]

NARRATIVE: CASE EVENT DATE: 20240126
